FAERS Safety Report 14824061 (Version 1)
Quarter: 2018Q2

REPORT INFORMATION
  Report Type: Spontaneous
  Country: US (occurrence: US)
  Receive Date: 20180428
  Receipt Date: 20180428
  Transmission Date: 20180711
  Serious: No
  Sender: FDA-Public Use
  Company Number: US-TEVA-2018-US-870127

PATIENT
  Age: 51 Year
  Sex: Female
  Weight: 64 kg

DRUGS (13)
  1. NUVIGIL [Suspect]
     Active Substance: ARMODAFINIL
     Indication: COGNITIVE DISORDER
     Dates: end: 2014
  2. ALPRAZOLAM. [Concomitant]
     Active Substance: ALPRAZOLAM
     Route: 065
  3. PROZAC [Concomitant]
     Active Substance: FLUOXETINE HYDROCHLORIDE
     Route: 065
  4. PROVIGIL [Suspect]
     Active Substance: MODAFINIL
     Indication: BIPOLAR II DISORDER
     Dates: end: 2014
  5. ARMODAFINIL. [Suspect]
     Active Substance: ARMODAFINIL
     Route: 065
  6. PROVIGIL [Suspect]
     Active Substance: MODAFINIL
     Indication: SOMNOLENCE
  7. NUVIGIL [Suspect]
     Active Substance: ARMODAFINIL
     Indication: SOMNOLENCE
  8. ABILIFY [Concomitant]
     Active Substance: ARIPIPRAZOLE
     Route: 065
  9. PROVIGIL [Suspect]
     Active Substance: MODAFINIL
     Indication: COGNITIVE DISORDER
     Route: 065
  10. NUVIGIL [Suspect]
     Active Substance: ARMODAFINIL
     Indication: BIPOLAR II DISORDER
     Dates: end: 2014
  11. LAMICTAL [Concomitant]
     Active Substance: LAMOTRIGINE
     Route: 065
  12. SYNTHROID [Concomitant]
     Active Substance: LEVOTHYROXINE SODIUM
     Route: 065
  13. LITHIUM. [Concomitant]
     Active Substance: LITHIUM
     Route: 065

REACTIONS (3)
  - Feeling abnormal [Not Recovered/Not Resolved]
  - Off label use [Unknown]
  - Cognitive disorder [Not Recovered/Not Resolved]

NARRATIVE: CASE EVENT DATE: 200601
